FAERS Safety Report 9107936 (Version 1)
Quarter: 2013Q1

REPORT INFORMATION
  Report Type: Spontaneous
  Country: US (occurrence: US)
  Receive Date: 20130221
  Receipt Date: 20130221
  Transmission Date: 20140127
  Serious: Yes (Other)
  Sender: FDA-Public Use
  Company Number: US-AMGEN-USASP2013011117

PATIENT
  Sex: 0

DRUGS (2)
  1. EPOGEN [Suspect]
     Indication: PRODUCT USED FOR UNKNOWN INDICATION
     Dosage: UNK
  2. PEGINESATIDE [Concomitant]
     Dosage: UNK

REACTIONS (1)
  - Anaphylactic reaction [Recovered/Resolved]
